FAERS Safety Report 6731218-0 (Version None)
Quarter: 2010Q2

REPORT INFORMATION
  Report Type: 
  Country: None (occurrence: None)
  Receive Date: 20100517
  Receipt Date: 20100517
  Transmission Date: 20101027
  Serious: No
  Sender: FDA-Public Use
  Company Number: None

PATIENT
  Age: 38 Year
  Sex: Female
  Weight: 87.0906 kg

DRUGS (1)
  1. ALLI [Suspect]
     Indication: WEIGHT CONTROL
     Dosage: 60 MG TABLET T.I.D. PO
     Route: 048
     Dates: start: 20100508, end: 20100514

REACTIONS (3)
  - CONSTIPATION [None]
  - FLATULENCE [None]
  - RECTAL HAEMORRHAGE [None]
